FAERS Safety Report 20741064 (Version 1)
Quarter: 2022Q2

REPORT INFORMATION
  Report Type: Spontaneous
  Country: US (occurrence: None)
  Receive Date: 20220422
  Receipt Date: 20220422
  Transmission Date: 20220721
  Serious: No
  Sender: FDA-Public Use
  Company Number: 2022A126882

PATIENT
  Age: 792 Month
  Sex: Female
  Weight: 136.1 kg

DRUGS (1)
  1. BUDESONIDE\FORMOTEROL\GLYCOPYRRONIUM [Suspect]
     Active Substance: BUDESONIDE\FORMOTEROL\GLYCOPYRRONIUM
     Indication: Dyspnoea
     Dosage: 160/9/4.8 MCG TWO INHALATIONS
     Route: 055
     Dates: start: 202203

REACTIONS (9)
  - Vomiting [Recovered/Resolved]
  - Pain in extremity [Recovered/Resolved]
  - Chills [Recovered/Resolved]
  - Dysuria [Recovered/Resolved]
  - Retching [Recovered/Resolved]
  - Productive cough [Not Recovered/Not Resolved]
  - Muscle spasms [Recovered/Resolved]
  - Off label use [Unknown]
  - Intentional product misuse [Unknown]

NARRATIVE: CASE EVENT DATE: 20220301
